FAERS Safety Report 23130662 (Version 1)
Quarter: 2023Q4

REPORT INFORMATION
  Report Type: Spontaneous
  Country: CN (occurrence: None)
  Receive Date: 20231031
  Receipt Date: 20231031
  Transmission Date: 20240110
  Serious: Yes (Hospitalization, Other)
  Sender: FDA-Public Use
  Company Number: 2023A245007

PATIENT
  Age: 29220 Day
  Sex: Female
  Weight: 65 kg

DRUGS (5)
  1. FULVESTRANT [Suspect]
     Active Substance: FULVESTRANT
     Indication: Neoplasm malignant
     Route: 030
     Dates: start: 20230401, end: 20231001
  2. ABEMACICLIB [Suspect]
     Active Substance: ABEMACICLIB
     Dosage: DID NOT TAKE THE DRUG REGULARLY
     Route: 048
     Dates: start: 202307
  3. DALPICICLIB ISETHIONATE [Suspect]
     Active Substance: DALPICICLIB ISETHIONATE
     Indication: Neoplasm malignant
     Route: 048
     Dates: start: 20230915, end: 20230930
  4. DALPICICLIB ISETHIONATE [Suspect]
     Active Substance: DALPICICLIB ISETHIONATE
     Indication: Neoplasm malignant
     Route: 048
     Dates: start: 20231001, end: 20231012
  5. EXEMESTANE [Concomitant]
     Active Substance: EXEMESTANE
     Dates: start: 202307

REACTIONS (1)
  - Myelosuppression [Unknown]

NARRATIVE: CASE EVENT DATE: 20231008
